FAERS Safety Report 5788516-7 (Version None)
Quarter: 2008Q2

REPORT INFORMATION
  Report Type: 
  Country: None (occurrence: None)
  Receive Date: 20080625
  Receipt Date: 20080625
  Transmission Date: 20081010
  Serious: Yes (Hospitalization)
  Sender: FDA-Public Use
  Company Number: None

PATIENT
  Sex: Female
  Weight: 78.4 kg

DRUGS (2)
  1. BACTRIM DS [Suspect]
     Indication: URINARY TRACT INFECTION
     Dosage: 1 OR 2 TABLETS EVERY 12 HOURS ORAL
     Route: 048
     Dates: start: 20080529
  2. ZOSYN [Suspect]
     Indication: SEPSIS
     Dosage: 2.25GM EVERY 8 HOURS IV PIGGYBACK
     Route: 042
     Dates: start: 20080530, end: 20080602

REACTIONS (10)
  - BLISTER [None]
  - HYPOTENSION [None]
  - MALAISE [None]
  - MENTAL STATUS CHANGES [None]
  - PYREXIA [None]
  - RENAL FAILURE ACUTE [None]
  - SEPSIS [None]
  - SKIN EXFOLIATION [None]
  - SYNCOPE [None]
  - TOXIC EPIDERMAL NECROLYSIS [None]
